FAERS Safety Report 12090180 (Version 4)
Quarter: 2016Q3

REPORT INFORMATION
  Report Type: Spontaneous
  Country: US (occurrence: US)
  Receive Date: 20160218
  Receipt Date: 20160822
  Transmission Date: 20161109
  Serious: Yes (Hospitalization)
  Sender: FDA-Public Use
  Company Number: US-DSJP-DSU-2016-105663

PATIENT

DRUGS (8)
  1. ATENOLOL. [Concomitant]
     Active Substance: ATENOLOL
     Indication: HYPERTENSION
     Dosage: 50 MG, QD
     Route: 048
     Dates: start: 200712
  2. OXYCODONE [Concomitant]
     Active Substance: OXYCODONE
     Indication: PRODUCT USED FOR UNKNOWN INDICATION
     Dosage: 5/325 MG, UNK
     Route: 048
  3. BENICAR [Suspect]
     Active Substance: OLMESARTAN MEDOXOMIL
     Dosage: 40 MG, QD
     Route: 048
     Dates: start: 20090221, end: 20110111
  4. ALPRAZOLAM. [Concomitant]
     Active Substance: ALPRAZOLAM
     Indication: DEPRESSION
     Dosage: 0.25 MG, TID
     Route: 048
     Dates: start: 200803, end: 201502
  5. NICOTINE TRANSDERMAL SYSTEM [Concomitant]
     Active Substance: NICOTINE
     Indication: PRODUCT USED FOR UNKNOWN INDICATION
     Dosage: 21 MG, QD
  6. ALPRAZOLAM. [Concomitant]
     Active Substance: ALPRAZOLAM
     Indication: ANXIETY
  7. BENICAR [Suspect]
     Active Substance: OLMESARTAN MEDOXOMIL
     Indication: HYPERTENSION
     Dosage: 20 MG, UNK
     Dates: start: 20080311, end: 20090221
  8. SIMVASTATIN. [Concomitant]
     Active Substance: SIMVASTATIN
     Indication: BLOOD CHOLESTEROL INCREASED
     Dosage: 40 MG, QD
     Route: 048
     Dates: start: 200801, end: 200803

REACTIONS (4)
  - Diarrhoea haemorrhagic [Unknown]
  - Umbilical hernia [Not Recovered/Not Resolved]
  - Diverticulum [Unknown]
  - Malabsorption [Recovering/Resolving]

NARRATIVE: CASE EVENT DATE: 200905
